FAERS Safety Report 7241001-8 (Version None)
Quarter: 2011Q1

REPORT INFORMATION
  Report Type: 
  Country: None (occurrence: None)
  Receive Date: 20110124
  Receipt Date: 20110111
  Transmission Date: 20110831
  Serious: Yes (Hospitalization)
  Sender: FDA-Public Use
  Company Number: PHHY2010JP88370

PATIENT
  Age: 68 Year
  Sex: Male

DRUGS (7)
  1. ZOMETA [Suspect]
     Indication: METASTASES TO SPINE
     Dosage: ONCE IN EVERY 4 WEEKS
     Route: 042
     Dates: end: 20080613
  2. DEXAMETHASONE [Concomitant]
     Dosage: 0.5 MG
     Route: 048
  3. GOSERELIN ACETATE [Concomitant]
  4. GLIBENCLAMIDE [Concomitant]
     Indication: DIABETES MELLITUS
     Route: 042
  5. METFORMIN HCL [Concomitant]
     Indication: DIABETES MELLITUS
  6. OXYCODONE HYDROCHLORIDE [Concomitant]
  7. ASPIRIN [Concomitant]
     Indication: ANGINA PECTORIS
     Route: 048

REACTIONS (9)
  - OSTEONECROSIS OF JAW [None]
  - PRIMARY SEQUESTRUM [None]
  - LOOSE TOOTH [None]
  - OSTEOMYELITIS [None]
  - BONE DISORDER [None]
  - JAW DISORDER [None]
  - IMPAIRED HEALING [None]
  - BREATH ODOUR [None]
  - ORAL MUCOSAL ERYTHEMA [None]
